FAERS Safety Report 5612370-7 (Version None)
Quarter: 2008Q1

REPORT INFORMATION
  Report Type: 
  Country: None (occurrence: None)
  Receive Date: 20080204
  Receipt Date: 20080122
  Transmission Date: 20080703
  Serious: Yes (Hospitalization)
  Sender: FDA-Public Use
  Company Number: GB-ROCHE-539620

PATIENT
  Age: 51 Year
  Sex: Male
  Weight: 136 kg

DRUGS (11)
  1. ORLISTAT [Suspect]
     Indication: OBESITY
     Route: 048
     Dates: start: 20070716
  2. RAMIPRIL [Concomitant]
     Indication: HYPERTENSION
     Dosage: STARTED FIVE YEARS AGO
     Route: 048
  3. ATENOLOL [Concomitant]
     Indication: HYPERTENSION
     Route: 048
  4. DOXAZOSIN [Concomitant]
     Indication: HYPERTENSION
     Route: 048
     Dates: end: 20071229
  5. DIGOXIN [Concomitant]
     Indication: ARRHYTHMIA
     Route: 048
  6. AMITRIPTYLINE HCL [Concomitant]
     Indication: PAIN
     Route: 048
  7. NOVOLOG MIX 70/30 [Concomitant]
     Route: 058
  8. METFORMIN HCL [Concomitant]
     Route: 048
  9. SIMVASTATIN [Concomitant]
     Route: 048
  10. DIHYDROCODEINE [Concomitant]
     Indication: PAIN
     Route: 048
  11. TRAMADOL HCL [Concomitant]
     Indication: PAIN
     Route: 048

REACTIONS (3)
  - FALL [None]
  - ORTHOSTATIC HYPOTENSION [None]
  - SKELETAL INJURY [None]
